FAERS Safety Report 6740194-6 (Version None)
Quarter: 2010Q2

REPORT INFORMATION
  Report Type: 
  Country: None (occurrence: None)
  Receive Date: 20100525
  Receipt Date: 20100517
  Transmission Date: 20101027
  Serious: Yes (Hospitalization)
  Sender: FDA-Public Use
  Company Number: A0809343A

PATIENT
  Age: 77 Year
  Sex: Female

DRUGS (2)
  1. AVANDIA [Suspect]
     Indication: DIABETES MELLITUS
     Dosage: 4MG PER DAY
     Route: 065
     Dates: start: 20060118, end: 20081009
  2. AVANDAMET [Suspect]
     Indication: DIABETES MELLITUS
     Dosage: 4MG PER DAY
     Dates: start: 20031111, end: 20060118

REACTIONS (9)
  - CARDIAC ARREST [None]
  - CARDIAC FAILURE CONGESTIVE [None]
  - CARDIAC PACEMAKER INSERTION [None]
  - CEREBROVASCULAR ACCIDENT [None]
  - FLUID OVERLOAD [None]
  - FLUID RETENTION [None]
  - HEPATIC FAILURE [None]
  - LIVER INJURY [None]
  - TRANSIENT ISCHAEMIC ATTACK [None]
